FAERS Safety Report 5232360-6 (Version None)
Quarter: 2007Q1

REPORT INFORMATION
  Report Type: 
  Country: None (occurrence: None)
  Receive Date: 20070207
  Receipt Date: 20070125
  Transmission Date: 20070707
  Serious: Yes (Hospitalization)
  Sender: FDA-Public Use
  Company Number: CA-AMGEN-US112189

PATIENT
  Sex: Female
  Weight: 65.8 kg

DRUGS (22)
  1. ENBREL [Suspect]
     Indication: RHEUMATOID ARTHRITIS
     Route: 058
     Dates: start: 20041217, end: 20050203
  2. RANITIDINE [Concomitant]
     Route: 048
     Dates: start: 20041129
  3. ROCALTROL [Concomitant]
     Dates: start: 20040101
  4. COMBIVENT [Concomitant]
  5. ACTONEL [Concomitant]
     Dates: start: 20010101
  6. LIPITOR [Concomitant]
     Dates: start: 20020101
  7. LEFLUNOMIDE [Concomitant]
  8. FERROUS GLUCONATE [Concomitant]
     Dates: start: 20020101
  9. PREDNISONE [Concomitant]
     Dates: start: 20040901
  10. HYDROCHLOROTHIAZIDE [Concomitant]
     Route: 048
     Dates: start: 20031220, end: 20050124
  11. DILTIAZEM [Concomitant]
     Route: 042
     Dates: start: 20050117, end: 20050117
  12. VITAMIN CAP [Concomitant]
     Dates: start: 19940101
  13. VERAPAMIL HYDROCHLORIDE [Concomitant]
     Dates: start: 20050117, end: 20050124
  14. ENTROPHEN [Concomitant]
     Route: 048
     Dates: start: 20040620, end: 20050124
  15. ACETAMINOPHEN [Concomitant]
     Dates: start: 20051101
  16. SLOW-K [Concomitant]
     Dates: start: 20050124, end: 20050724
  17. NITRO-DUR [Concomitant]
     Dates: start: 20050124, end: 20050724
  18. WARFARIN SODIUM [Concomitant]
     Route: 048
     Dates: start: 20050124
  19. LANOXIN [Concomitant]
     Route: 048
     Dates: start: 20050124
  20. METOPROLOL SUCCINATE [Concomitant]
     Route: 048
     Dates: start: 20050124
  21. VASOTEC [Concomitant]
     Route: 048
     Dates: start: 20050124
  22. FUROSEMIDE [Concomitant]
     Route: 048
     Dates: start: 20050124

REACTIONS (2)
  - ATRIAL FIBRILLATION [None]
  - CARDIAC FAILURE CONGESTIVE [None]
